FAERS Safety Report 18680592 (Version 1)
Quarter: 2020Q4

REPORT INFORMATION
  Report Type: Spontaneous
  Country: IR (occurrence: IR)
  Receive Date: 20201230
  Receipt Date: 20201230
  Transmission Date: 20210114
  Serious: Yes (Hospitalization, Other)
  Sender: FDA-Public Use
  Company Number: IR-CIPLA LTD.-2020IR09474

PATIENT

DRUGS (3)
  1. ALBENDAZOLE. [Interacting]
     Active Substance: ALBENDAZOLE
     Indication: PROPHYLAXIS
  2. PHENYTOIN. [Interacting]
     Active Substance: PHENYTOIN
     Indication: SEIZURE
     Dosage: UNK
     Route: 065
  3. ALBENDAZOLE. [Suspect]
     Active Substance: ALBENDAZOLE
     Indication: ECHINOCOCCIASIS
     Dosage: UNK
     Route: 048

REACTIONS (5)
  - Disease recurrence [Recovered/Resolved]
  - Echinococciasis [Recovered/Resolved]
  - Drug interaction [Unknown]
  - Treatment noncompliance [Unknown]
  - Generalised tonic-clonic seizure [Recovered/Resolved]
